FAERS Safety Report 19969206 (Version 2)
Quarter: 2021Q4

REPORT INFORMATION
  Report Type: Spontaneous
  Country: JP (occurrence: JP)
  Receive Date: 20211019
  Receipt Date: 20211112
  Transmission Date: 20220303
  Serious: Yes (Death)
  Sender: FDA-Public Use
  Company Number: JP-ELI_LILLY_AND_COMPANY-JP202110005833

PATIENT
  Age: 66 Year
  Sex: Male
  Weight: 54 kg

DRUGS (4)
  1. TALTZ [Suspect]
     Active Substance: IXEKIZUMAB
     Indication: Ankylosing spondylitis
     Dosage: 80 MG
     Route: 058
     Dates: start: 202109
  2. MIYA-BM [Concomitant]
     Active Substance: CLOSTRIDIUM BUTYRICUM SPORES STRAIN M-55
     Dosage: 1 DOSAGE FORM
     Route: 048
     Dates: start: 20201020, end: 20211011
  3. CINAL [ASCORBIC ACID;CALCIUM PANTOTHENATE] [Concomitant]
     Dosage: 1 DOSAGE FORM
     Route: 048
     Dates: start: 20201020, end: 20211011
  4. BIOTIN [Concomitant]
     Active Substance: BIOTIN
     Dosage: 1.5 G
     Route: 048
     Dates: start: 20201020, end: 20211011

REACTIONS (1)
  - Sudden death [Fatal]

NARRATIVE: CASE EVENT DATE: 20211012
